FAERS Safety Report 18143090 (Version 1)
Quarter: 2020Q3

REPORT INFORMATION
  Report Type: Spontaneous
  Country: DE (occurrence: DE)
  Receive Date: 20200813
  Receipt Date: 20200813
  Transmission Date: 20201103
  Serious: Yes (Hospitalization)
  Sender: FDA-Public Use
  Company Number: DE-AUROBINDO-AUR-APL-2020-038776

PATIENT
  Age: 68 Year
  Sex: Female

DRUGS (7)
  1. BISOPROLOL [Concomitant]
     Active Substance: BISOPROLOL
     Indication: PRODUCT USED FOR UNKNOWN INDICATION
     Dosage: 2.5 MILLIGRAM (1?0?1?0)
     Route: 048
  2. TAMSULOSIN [Concomitant]
     Active Substance: TAMSULOSIN
     Indication: PRODUCT USED FOR UNKNOWN INDICATION
     Dosage: 0.4 MILLIGRAM (1?0?0?0)
     Route: 048
  3. INSULIN;ISOPHANE INSULIN [Concomitant]
     Dosage: UNK, (BY VALUE, AMPOULES)
     Route: 058
  4. TORASEMIDE [Suspect]
     Active Substance: TORSEMIDE
     Indication: PRODUCT USED FOR UNKNOWN INDICATION
     Dosage: 100 MILLIGRAM (1?1?0.5?0)
     Route: 048
  5. AMLODIPINE [Suspect]
     Active Substance: AMLODIPINE BESYLATE
     Indication: PRODUCT USED FOR UNKNOWN INDICATION
     Dosage: 10 MILLIGRAM (1?0?1?0)
     Route: 048
  6. INSULIN;ISOPHANE INSULIN [Concomitant]
     Indication: PRODUCT USED FOR UNKNOWN INDICATION
     Dosage: UNK, (BY VALUE, AMPOULES)
     Route: 058
  7. VITAMIN D [Concomitant]
     Active Substance: VITAMIN D NOS
     Indication: PRODUCT USED FOR UNKNOWN INDICATION
     Dosage: 20000 INTERNATIONAL UNIT (WEEK, WEDNESDAYS, CAPSULES)
     Route: 048

REACTIONS (7)
  - Weight increased [Unknown]
  - Fatigue [Unknown]
  - Wheezing [Unknown]
  - Tachypnoea [Unknown]
  - Dyspnoea [Unknown]
  - Oedema peripheral [Unknown]
  - General physical health deterioration [Unknown]
